FAERS Safety Report 17722763 (Version 1)
Quarter: 2020Q2

REPORT INFORMATION
  Report Type: Spontaneous
  Country: US (occurrence: US)
  Receive Date: 20200429
  Receipt Date: 20200429
  Transmission Date: 20200714
  Serious: Yes (Hospitalization)
  Sender: FDA-Public Use
  Company Number: US-GLOBAL BLOOD THERAPEUTICS INC-US-GBT-20-00803

PATIENT
  Age: 25 Year
  Sex: Male

DRUGS (1)
  1. OXBRYTA [Suspect]
     Active Substance: VOXELOTOR
     Indication: PROPHYLAXIS
     Route: 048
     Dates: start: 202003, end: 2020

REACTIONS (6)
  - Sickle cell anaemia with crisis [Unknown]
  - Malaise [Unknown]
  - Sickle cell anaemia with crisis [Recovered/Resolved]
  - Therapy non-responder [Unknown]
  - Pyrexia [Recovered/Resolved]
  - Off label use [Unknown]

NARRATIVE: CASE EVENT DATE: 202003
